FAERS Safety Report 14893951 (Version 1)
Quarter: 2018Q2

REPORT INFORMATION
  Report Type: Report from Study
  Country: US (occurrence: US)
  Receive Date: 20180514
  Receipt Date: 20180514
  Transmission Date: 20180711
  Serious: Yes (Hospitalization, Congenital Anomaly)
  Sender: FDA-Public Use
  Company Number: US-ACTELION-A-NJ2018-171832

PATIENT
  Age: 58 Year
  Sex: Female
  Weight: 64.4 kg

DRUGS (13)
  1. MAGNESIUM HYDROXIDE. [Concomitant]
     Active Substance: MAGNESIUM HYDROXIDE
     Dosage: UNK
     Dates: start: 20180414
  2. OXYGEN. [Concomitant]
     Active Substance: OXYGEN
     Dosage: 5 L, UNK
  3. AMIODARONE [Concomitant]
     Active Substance: AMIODARONE
     Indication: HEART RATE IRREGULAR
     Dosage: UNK
     Dates: start: 20180414
  4. CARVEDILOL. [Concomitant]
     Active Substance: CARVEDILOL
     Dosage: UNK
     Dates: start: 20180414
  5. GABAPENTIN. [Concomitant]
     Active Substance: GABAPENTIN
     Dosage: UNK
     Dates: start: 20180414
  6. OPSUMIT [Suspect]
     Active Substance: MACITENTAN
     Indication: PULMONARY ARTERIAL HYPERTENSION
     Dosage: 10 MG, QD
     Route: 048
     Dates: start: 20170714
  7. POTASSIUM CHLORIDE. [Concomitant]
     Active Substance: POTASSIUM CHLORIDE
     Dosage: UNK
     Dates: start: 20180414
  8. DIGOXIN. [Concomitant]
     Active Substance: DIGOXIN
     Dosage: UNK
     Dates: start: 20180414
  9. OXYGEN. [Concomitant]
     Active Substance: OXYGEN
     Dosage: 8 L, PER MIN
  10. WARFARIN [Concomitant]
     Active Substance: WARFARIN
  11. FLOLAN [Concomitant]
     Active Substance: EPOPROSTENOL SODIUM
  12. OXYGEN. [Concomitant]
     Active Substance: OXYGEN
     Dosage: 7 L, PER MIN
  13. REVATIO [Concomitant]
     Active Substance: SILDENAFIL CITRATE

REACTIONS (12)
  - Atrial fibrillation [Recovered/Resolved]
  - Constipation [Unknown]
  - Right ventricular failure [Unknown]
  - Subclavian artery thrombosis [Unknown]
  - Tachycardia [Recovered/Resolved with Sequelae]
  - Heart rate irregular [Recovered/Resolved]
  - Chest pain [Recovered/Resolved with Sequelae]
  - Abdominal pain [Recovered/Resolved with Sequelae]
  - Hypoxia [Recovered/Resolved with Sequelae]
  - Atrial flutter [Recovered/Resolved]
  - Acute respiratory failure [Recovered/Resolved with Sequelae]
  - Oxygen saturation decreased [Recovered/Resolved with Sequelae]

NARRATIVE: CASE EVENT DATE: 20180414
